FAERS Safety Report 24870041 (Version 2)
Quarter: 2025Q1

REPORT INFORMATION
  Report Type: Spontaneous
  Country: US (occurrence: US)
  Receive Date: 20250121
  Receipt Date: 20250220
  Transmission Date: 20250409
  Serious: No
  Sender: PFIZER
  Company Number: US-PFIZER INC-PV202500008040

PATIENT
  Age: 70 Year
  Sex: Female

DRUGS (3)
  1. INLYTA [Suspect]
     Active Substance: AXITINIB
  2. KEYTRUDA [Suspect]
     Active Substance: PEMBROLIZUMAB
  3. LOSARTAN [Suspect]
     Active Substance: LOSARTAN
     Indication: Blood pressure increased

REACTIONS (5)
  - Rhinorrhoea [Unknown]
  - Blood pressure increased [Unknown]
  - Pain [Unknown]
  - Blood potassium increased [Unknown]
  - Fatigue [Not Recovered/Not Resolved]
